FAERS Safety Report 19459449 (Version 1)
Quarter: 2021Q2

REPORT INFORMATION
  Report Type: Spontaneous
  Country: US (occurrence: US)
  Receive Date: 20210625
  Receipt Date: 20210625
  Transmission Date: 20210717
  Serious: Yes (Other)
  Sender: FDA-Public Use
  Company Number: None

PATIENT
  Age: 23 Year
  Sex: Female
  Weight: 88.9 kg

DRUGS (1)
  1. VEKLURY [Suspect]
     Active Substance: REMDESIVIR
     Indication: SARS-COV-2 TEST POSITIVE
     Dosage: ?          OTHER FREQUENCY:LOADING DOSE;?
     Route: 040
     Dates: start: 20210624, end: 20210624

REACTIONS (4)
  - Pruritus [None]
  - Hypersensitivity [None]
  - Flushing [None]
  - Swelling [None]

NARRATIVE: CASE EVENT DATE: 20210624
